FAERS Safety Report 9060157 (Version 1)
Quarter: 2013Q1

REPORT INFORMATION
  Report Type: Spontaneous
  Country: SE (occurrence: SE)
  Receive Date: 20130212
  Receipt Date: 20130212
  Transmission Date: 20140127
  Serious: Yes (Hospitalization)
  Sender: FDA-Public Use
  Company Number: SE-ALLERGAN-1301333US

PATIENT
  Age: 77 Year
  Sex: Male

DRUGS (4)
  1. GANFORT [Suspect]
     Indication: GLAUCOMA
     Dosage: UNK
     Route: 047
     Dates: start: 2012
  2. COSOPT [Suspect]
     Indication: PRODUCT USED FOR UNKNOWN INDICATION
     Route: 047
  3. XALCOM [Suspect]
     Indication: PRODUCT USED FOR UNKNOWN INDICATION
     Dosage: UNK
     Route: 047
     Dates: start: 20130102
  4. AZARGA [Suspect]
     Indication: PRODUCT USED FOR UNKNOWN INDICATION
     Dosage: UNK
     Route: 047
     Dates: start: 2012

REACTIONS (4)
  - Facial pain [Recovered/Resolved]
  - Fatigue [Recovered/Resolved]
  - Toothache [Recovered/Resolved]
  - Headache [Recovered/Resolved]
